FAERS Safety Report 12523019 (Version 2)
Quarter: 2016Q3

REPORT INFORMATION
  Report Type: Spontaneous
  Country: US (occurrence: US)
  Receive Date: 20160701
  Receipt Date: 20160901
  Transmission Date: 20161109
  Serious: No
  Sender: FDA-Public Use
  Company Number: US-009507513-1606USA008526

PATIENT
  Age: 25 Year
  Sex: Female
  Weight: 117.91 kg

DRUGS (1)
  1. NEXPLANON [Suspect]
     Active Substance: ETONOGESTREL
     Indication: CONTRACEPTION
     Dosage: 1 ROD/EVERY THREE YEARS, UNK
     Route: 059
     Dates: start: 20150928

REACTIONS (3)
  - Discomfort [Not Recovered/Not Resolved]
  - Implant site pain [Not Recovered/Not Resolved]
  - Device kink [Not Recovered/Not Resolved]

NARRATIVE: CASE EVENT DATE: 20160615
